FAERS Safety Report 5893440-5 (Version None)
Quarter: 2008Q3

REPORT INFORMATION
  Report Type: 
  Country: None (occurrence: None)
  Receive Date: 20080922
  Receipt Date: 20080922
  Transmission Date: 20090109
  Serious: Yes (Hospitalization)
  Sender: FDA-Public Use
  Company Number: None

PATIENT
  Age: 65 Year
  Sex: Male
  Weight: 83.4619 kg

DRUGS (1)
  1. GABAPENTIN [Suspect]
     Indication: BACK PAIN
     Dosage: 300 MG EVERY 12 HOURS PO
     Route: 048
     Dates: start: 20080918, end: 20080921

REACTIONS (7)
  - BODY TEMPERATURE INCREASED [None]
  - DYSARTHRIA [None]
  - INCOHERENT [None]
  - MALAISE [None]
  - TREMOR [None]
  - URINARY INCONTINENCE [None]
  - VOMITING [None]
